FAERS Safety Report 13125554 (Version 1)
Quarter: 2017Q1

REPORT INFORMATION
  Report Type: Spontaneous
  Country: US (occurrence: US)
  Receive Date: 20170117
  Receipt Date: 20170117
  Transmission Date: 20170428
  Serious: Yes (Hospitalization)
  Sender: FDA-Public Use
  Company Number: None

PATIENT
  Age: 70 Year
  Sex: Male

DRUGS (4)
  1. OCCUVITE [Concomitant]
  2. LEVAQUIN [Suspect]
     Active Substance: LEVOFLOXACIN
     Indication: PNEUMONIA
  3. AVAPRO [Concomitant]
     Active Substance: IRBESARTAN
  4. MVI 50+ [Concomitant]

REACTIONS (5)
  - Hypotension [None]
  - Pain in extremity [None]
  - Loss of consciousness [None]
  - Sensory loss [None]
  - Motor dysfunction [None]

NARRATIVE: CASE EVENT DATE: 20160312
